FAERS Safety Report 10227560 (Version 1)
Quarter: 2014Q2

REPORT INFORMATION
  Report Type: Spontaneous
  Country: US (occurrence: None)
  Receive Date: 20140609
  Receipt Date: 20140609
  Transmission Date: 20141212
  Serious: No
  Sender: FDA-Public Use
  Company Number: None

PATIENT
  Age: 63 Year
  Sex: Female
  Weight: 42.18 kg

DRUGS (1)
  1. EXJADE 250MG NOVARTIS [Suspect]
     Indication: BLOOD IRON ABNORMAL
     Route: 048
     Dates: start: 20140525, end: 20140525

REACTIONS (4)
  - Vomiting [None]
  - Headache [None]
  - Dizziness [None]
  - Diarrhoea [None]
